FAERS Safety Report 15901164 (Version 1)
Quarter: 2019Q1

REPORT INFORMATION
  Report Type: Spontaneous
  Country: US (occurrence: US)
  Receive Date: 20190201
  Receipt Date: 20190201
  Transmission Date: 20190417
  Serious: No
  Sender: FDA-Public Use
  Company Number: PHEH2019US004864

PATIENT
  Age: 76 Year
  Sex: Male

DRUGS (1)
  1. PROMACTA [Suspect]
     Active Substance: ELTROMBOPAG OLAMINE
     Indication: IMMUNE THROMBOCYTOPENIC PURPURA
     Dosage: 1 DF, QD
     Route: 048
     Dates: start: 20160406

REACTIONS (1)
  - Platelet disorder [Unknown]

NARRATIVE: CASE EVENT DATE: 201812
